FAERS Safety Report 10022311 (Version 2)
Quarter: 2014Q1

REPORT INFORMATION
  Report Type: Report from Study
  Country: DE (occurrence: DE)
  Receive Date: 20140319
  Receipt Date: 20140319
  Transmission Date: 20141002
  Serious: Yes (Hospitalization)
  Sender: FDA-Public Use
  Company Number: DE-TEVA-463985USA

PATIENT
  Age: 66 Year
  Sex: Male

DRUGS (3)
  1. BENDAMUSTINE [Suspect]
     Indication: CHRONIC LYMPHOCYTIC LEUKAEMIA
     Route: 065
     Dates: start: 20140122, end: 20140123
  2. BENDAMUSTINE [Suspect]
     Dates: start: 20140116, end: 20140119
  3. RITUXIMAB [Concomitant]
     Indication: CHRONIC LYMPHOCYTIC LEUKAEMIA
     Dosage: 4 CYCLES
     Dates: start: 20140116, end: 20140119

REACTIONS (2)
  - Pancreatitis acute [Recovered/Resolved]
  - Leukopenia [Recovered/Resolved]
